FAERS Safety Report 5369389-3 (Version None)
Quarter: 2007Q2

REPORT INFORMATION
  Report Type: 
  Country: None (occurrence: None)
  Receive Date: 20070625
  Receipt Date: 20070522
  Transmission Date: 20071010
  Serious: Yes (Hospitalization, Other)
  Sender: FDA-Public Use
  Company Number: US-ASTRAZENECA-2007UW06577

PATIENT
  Age: 52 Year
  Sex: Female
  Weight: 68.6 kg

DRUGS (4)
  1. CRESTOR [Suspect]
     Indication: HYPERLIPIDAEMIA
     Route: 048
     Dates: start: 20070307, end: 20070329
  2. FLEXERIL [Suspect]
     Dosage: SHORT TERM
  3. NAPROXEN [Suspect]
  4. SYNTHROID [Concomitant]
     Indication: HYPOTHYROIDISM
     Route: 048

REACTIONS (5)
  - BLOOD CREATINE PHOSPHOKINASE INCREASED [None]
  - FATIGUE [None]
  - MYALGIA [None]
  - PAIN IN EXTREMITY [None]
  - RHABDOMYOLYSIS [None]
